FAERS Safety Report 5340905-0 (Version None)
Quarter: 2007Q2

REPORT INFORMATION
  Report Type: 
  Country: None (occurrence: None)
  Receive Date: 20070531
  Receipt Date: 20070521
  Transmission Date: 20071010
  Serious: Yes (Death, Life-Threatening, Other)
  Sender: FDA-Public Use
  Company Number: JP-MERCK-0704USA03151

PATIENT
  Age: 72 Year
  Sex: Female
  Weight: 30 kg

DRUGS (3)
  1. PRIMAXIN [Suspect]
     Indication: STAPHYLOCOCCAL SEPSIS
     Route: 041
     Dates: start: 20040204, end: 20040216
  2. VANCOMYCIN HYDROCHLORIDE [Concomitant]
     Indication: STAPHYLOCOCCAL SEPSIS
     Route: 041
     Dates: start: 20040204, end: 20040222
  3. CEFTAZIDIME [Suspect]
     Route: 065
     Dates: start: 20040101

REACTIONS (11)
  - ALTERED STATE OF CONSCIOUSNESS [None]
  - BRAIN OEDEMA [None]
  - CEREBELLAR INFARCTION [None]
  - CEREBRAL INFARCTION [None]
  - CONVULSION [None]
  - DEATH [None]
  - DISSEMINATED INTRAVASCULAR COAGULATION [None]
  - PLEURAL EFFUSION [None]
  - PULMONARY HAEMORRHAGE [None]
  - RESPIRATORY FAILURE [None]
  - SPUTUM PURULENT [None]
